FAERS Safety Report 8310610-7 (Version None)
Quarter: 2012Q2

REPORT INFORMATION
  Report Type: 
  Country: None (occurrence: None)
  Receive Date: 20120425
  Receipt Date: 20120425
  Transmission Date: 20120825
  Serious: Yes (Hospitalization)
  Sender: FDA-Public Use
  Company Number: None

PATIENT
  Age: 29 Year
  Sex: Female
  Weight: 77.9 kg

DRUGS (1)
  1. NPLATE [Suspect]
     Indication: IDIOPATHIC THROMBOCYTOPENIC PURPURA
     Dosage: TITRATED TO 360MCG
     Route: 058
     Dates: start: 20120308, end: 20120420

REACTIONS (2)
  - RENAL ARTERY THROMBOSIS [None]
  - NO THERAPEUTIC RESPONSE [None]
